FAERS Safety Report 9412785 (Version 1)
Quarter: 2013Q3

REPORT INFORMATION
  Report Type: Spontaneous
  Country: FR (occurrence: FR)
  Receive Date: 20130722
  Receipt Date: 20130722
  Transmission Date: 20140515
  Serious: Yes (Life-Threatening, Hospitalization)
  Sender: FDA-Public Use
  Company Number: PHHY2013FR077482

PATIENT
  Age: 63 Year
  Sex: Female

DRUGS (6)
  1. NEORAL [Suspect]
     Dosage: 220 MG, QD
     Route: 048
     Dates: start: 20130326, end: 20130615
  2. MYFORTIC [Suspect]
     Dosage: 360 MG, BID
     Route: 048
     Dates: start: 20130326, end: 20130615
  3. MYFORTIC [Suspect]
     Route: 048
     Dates: start: 20130621
  4. ROVALCYTE [Suspect]
     Dosage: 450 MG, QD
     Route: 048
     Dates: start: 20130326, end: 20130615
  5. BACTRIM [Suspect]
     Dosage: 5 DF, BID
     Route: 048
     Dates: start: 20130326, end: 20130613
  6. SOLUMEDROL [Concomitant]
     Indication: KIDNEY TRANSPLANT REJECTION

REACTIONS (4)
  - Agranulocytosis [Recovered/Resolved]
  - Neutropenia [Recovered/Resolved]
  - Leukopenia [Recovered/Resolved]
  - Pyrexia [Recovered/Resolved]
